FAERS Safety Report 17307055 (Version 1)
Quarter: 2020Q1

REPORT INFORMATION
  Report Type: Spontaneous
  Country: US (occurrence: US)
  Receive Date: 20200122
  Receipt Date: 20200122
  Transmission Date: 20200409
  Serious: Yes (Other)
  Sender: FDA-Public Use
  Company Number: None

PATIENT
  Age: 63 Year
  Sex: Male
  Weight: 80.55 kg

DRUGS (1)
  1. ACTEMRA [Suspect]
     Active Substance: TOCILIZUMAB
     Indication: RHEUMATOID ARTHRITIS
     Dosage: ?          OTHER FREQUENCY:WEEKLY;?
     Route: 058
     Dates: start: 20190701

REACTIONS (3)
  - Therapy cessation [None]
  - Rheumatoid arthritis [None]
  - Dizziness [None]

NARRATIVE: CASE EVENT DATE: 20191219
